FAERS Safety Report 25957421 (Version 2)
Quarter: 2025Q4

REPORT INFORMATION
  Report Type: Spontaneous
  Country: EU (occurrence: EU)
  Receive Date: 20251024
  Receipt Date: 20251212
  Transmission Date: 20260118
  Serious: Yes (Hospitalization)
  Sender: ADC THERAPEUTICS
  Company Number: EU-BIOVITRUM-2025-PT-014418

PATIENT
  Age: 34 Year
  Sex: Male

DRUGS (4)
  1. ZYNLONTA [Suspect]
     Active Substance: LONCASTUXIMAB TESIRINE-LPYL
     Indication: Product used for unknown indication
     Dosage: 1ST CYCLE
     Dates: start: 20250811, end: 20250811
  2. ZYNLONTA [Suspect]
     Active Substance: LONCASTUXIMAB TESIRINE-LPYL
     Dosage: 2ND CYCLE
     Dates: start: 20250901, end: 20250901
  3. ZYNLONTA [Suspect]
     Active Substance: LONCASTUXIMAB TESIRINE-LPYL
     Dosage: 3RD CYCLE
     Dates: start: 20250922, end: 20250922
  4. ZYNLONTA [Suspect]
     Active Substance: LONCASTUXIMAB TESIRINE-LPYL
     Dosage: 4TH CYCLE
     Dates: start: 20251013, end: 20251013

REACTIONS (3)
  - Hepatic enzyme increased [Unknown]
  - Rash [Unknown]
  - Disease progression [Unknown]
